FAERS Safety Report 19894504 (Version 1)
Quarter: 2021Q3

REPORT INFORMATION
  Report Type: Spontaneous
  Country: BR (occurrence: BR)
  Receive Date: 20210928
  Receipt Date: 20210928
  Transmission Date: 20211014
  Serious: Yes (Other)
  Sender: FDA-Public Use
  Company Number: BR-ROCHE-2919072

PATIENT

DRUGS (1)
  1. ALTEPLASE. [Suspect]
     Active Substance: ALTEPLASE
     Indication: INFARCTION
     Route: 065

REACTIONS (4)
  - Haemoptysis [Unknown]
  - Product use in unapproved indication [Unknown]
  - Syncope [Unknown]
  - Haemorrhage [Unknown]
